FAERS Safety Report 6213888-9 (Version None)
Quarter: 2009Q2

REPORT INFORMATION
  Report Type: 
  Country: None (occurrence: None)
  Receive Date: 20090602
  Receipt Date: 20090602
  Transmission Date: 20091009
  Serious: No
  Sender: FDA-Public Use
  Company Number: None

PATIENT
  Sex: Female
  Weight: 57.1532 kg

DRUGS (1)
  1. SULFAMETHOXAZOLE AND TRIMETHOPRIM [Suspect]
     Indication: STAPHYLOCOCCAL INFECTION
     Dosage: 30 1 2X DAY PO
     Route: 048
     Dates: start: 20060113, end: 20060118

REACTIONS (3)
  - ARTHRALGIA [None]
  - MYDRIASIS [None]
  - PALPITATIONS [None]
